FAERS Safety Report 5213645-6 (Version None)
Quarter: 2007Q1

REPORT INFORMATION
  Report Type: 
  Country: None (occurrence: None)
  Receive Date: 20070119
  Receipt Date: 20070109
  Transmission Date: 20070707
  Serious: Yes (Hospitalization)
  Sender: FDA-Public Use
  Company Number: CA-PFIZER INC-2007004059

PATIENT
  Sex: Male
  Weight: 77.3 kg

DRUGS (15)
  1. SU-011,248 [Suspect]
     Indication: METASTATIC RENAL CELL CARCINOMA
     Route: 048
     Dates: start: 20061130, end: 20061217
  2. SU-011,248 [Suspect]
     Route: 048
  3. RATIO-CODEINE [Concomitant]
     Route: 048
  4. SERAX [Concomitant]
     Route: 048
     Dates: start: 20060713, end: 20060731
  5. VITAMIN CAP [Concomitant]
     Route: 048
     Dates: start: 20060715
  6. OXYCODONE HYDROCHLORIDE AND ACETAMINOPHEN [Concomitant]
     Route: 048
     Dates: start: 20060714
  7. FERROUS SULFATE TAB [Concomitant]
     Route: 048
     Dates: start: 20060512, end: 20060806
  8. NOVOGESIC [Concomitant]
     Route: 048
     Dates: start: 20060512
  9. LIPITOR [Concomitant]
     Route: 048
     Dates: start: 19980101
  10. ASCORBIC ACID [Concomitant]
     Route: 048
     Dates: start: 20060512, end: 20060806
  11. OXAZEPAM [Concomitant]
     Route: 048
     Dates: start: 20060630, end: 20060807
  12. TRAZODONE HCL [Concomitant]
     Route: 048
     Dates: start: 20060807
  13. DOXYCYCLINE [Concomitant]
     Route: 048
     Dates: start: 20060817, end: 20060821
  14. CLINDAMYCIN [Concomitant]
     Route: 048
     Dates: start: 20060822, end: 20060823
  15. NORVASC [Concomitant]
     Dates: start: 20050823

REACTIONS (2)
  - PLEURAL EFFUSION [None]
  - URINARY TRACT INFECTION [None]
